FAERS Safety Report 20258475 (Version 2)
Quarter: 2022Q3

REPORT INFORMATION
  Report Type: Spontaneous
  Country: US (occurrence: US)
  Receive Date: 20211230
  Receipt Date: 20220912
  Transmission Date: 20221026
  Serious: No
  Sender: FDA-Public Use
  Company Number: US-PFIZER INC-202101700343

PATIENT
  Age: 55 Year
  Sex: Female

DRUGS (1)
  1. IBRANCE [Suspect]
     Active Substance: PALBOCICLIB
     Dosage: 100 MG
     Dates: start: 20200313

REACTIONS (4)
  - Onychoclasis [Unknown]
  - Diarrhoea [Not Recovered/Not Resolved]
  - Alopecia [Unknown]
  - Fatigue [Unknown]
